FAERS Safety Report 15409032 (Version 1)
Quarter: 2018Q3

REPORT INFORMATION
  Report Type: Spontaneous
  Country: US (occurrence: US)
  Receive Date: 20180920
  Receipt Date: 20180920
  Transmission Date: 20181010
  Serious: No
  Sender: FDA-Public Use
  Company Number: US-TEVA-2017-US-836663

PATIENT
  Sex: Female

DRUGS (2)
  1. FENTANYL. [Suspect]
     Active Substance: FENTANYL
     Indication: BACK PAIN
  2. FENTANYL. [Suspect]
     Active Substance: FENTANYL
     Indication: MUSCULOSKELETAL PAIN
     Dosage: DOSAGE STRENGTH: 25MCG/HR
     Route: 062
     Dates: start: 20171204

REACTIONS (4)
  - Wrong technique in product usage process [Unknown]
  - Product use complaint [Unknown]
  - Product adhesion issue [Unknown]
  - Product use in unapproved indication [Unknown]
